FAERS Safety Report 13682689 (Version 2)
Quarter: 2017Q2

REPORT INFORMATION
  Report Type: Spontaneous
  Country: US (occurrence: US)
  Receive Date: 20170623
  Receipt Date: 20170623
  Transmission Date: 20170830
  Serious: No
  Sender: FDA-Public Use
  Company Number: US-MALLINCKRODT-T201604984

PATIENT
  Sex: Female

DRUGS (19)
  1. CLONAZEPAM. [Concomitant]
     Active Substance: CLONAZEPAM
  2. CARAFATE [Concomitant]
     Active Substance: SUCRALFATE
  3. BACLOFEN. [Concomitant]
     Active Substance: BACLOFEN
  4. PILOCARPINE. [Concomitant]
     Active Substance: PILOCARPINE
  5. NITROSTAT [Concomitant]
     Active Substance: NITROGLYCERIN
  6. MULTIVITAMIN [Concomitant]
     Active Substance: VITAMINS
  7. FOLIC ACID. [Concomitant]
     Active Substance: FOLIC ACID
  8. CELEBREX [Concomitant]
     Active Substance: CELECOXIB
  9. LEVOTHYROXIN [Concomitant]
     Active Substance: LEVOTHYROXINE
  10. LEUCOVORIN. [Concomitant]
     Active Substance: LEUCOVORIN
  11. LISINOPRIL. [Concomitant]
     Active Substance: LISINOPRIL
  12. VITAMIN D [Concomitant]
     Active Substance: CHOLECALCIFEROL
  13. H.P. ACTHAR [Suspect]
     Active Substance: CORTICOTROPIN
     Indication: SYSTEMIC LUPUS ERYTHEMATOSUS
     Dosage: 80 UNITS BID
     Route: 058
     Dates: start: 201606
  14. HYDROXYCHLOROQUINE [Concomitant]
     Active Substance: HYDROXYCHLOROQUINE
  15. DULOXETINE. [Concomitant]
     Active Substance: DULOXETINE
  16. PREDNISONE. [Concomitant]
     Active Substance: PREDNISONE
  17. METHADONE [Concomitant]
     Active Substance: METHADONE HYDROCHLORIDE
  18. LAMOTRIGINE. [Concomitant]
     Active Substance: LAMOTRIGINE
  19. METHOTREXATE. [Concomitant]
     Active Substance: METHOTREXATE

REACTIONS (1)
  - Gastrooesophageal reflux disease [Unknown]

NARRATIVE: CASE EVENT DATE: 2016
